FAERS Safety Report 7517164-3 (Version None)
Quarter: 2011Q2

REPORT INFORMATION
  Report Type: 
  Country: None (occurrence: None)
  Receive Date: 20110601
  Receipt Date: 20110531
  Transmission Date: 20111010
  Serious: Yes (Other)
  Sender: FDA-Public Use
  Company Number: US-PFIZER INC-2011117613

PATIENT
  Sex: Female
  Weight: 72.6 kg

DRUGS (5)
  1. LYRICA [Suspect]
     Indication: NEUROPATHY PERIPHERAL
     Dosage: UNK
     Dates: start: 20110415, end: 20110417
  2. LEVOTHYROXINE [Concomitant]
     Indication: HYPERTHYROIDISM
     Dosage: 100 UG, DAILY
  3. LISINOPRIL [Concomitant]
     Indication: HYPERTENSION
     Dosage: 10 MG, 2X/DAY
  4. DETROL [Concomitant]
     Indication: BLADDER DISCOMFORT
     Dosage: UNK, 2X/DAY
     Route: 048
  5. ACTOS [Concomitant]
     Indication: GLUCOSE TOLERANCE IMPAIRED
     Dosage: UNK
     Route: 048

REACTIONS (5)
  - MENTAL IMPAIRMENT [None]
  - VISUAL IMPAIRMENT [None]
  - BALANCE DISORDER [None]
  - OEDEMA PERIPHERAL [None]
  - JOINT SWELLING [None]
